FAERS Safety Report 24315045 (Version 2)
Quarter: 2024Q3

REPORT INFORMATION
  Report Type: Spontaneous
  Country: IT (occurrence: IT)
  Receive Date: 20240913
  Receipt Date: 20240915
  Transmission Date: 20241017
  Serious: Yes (Death)
  Sender: ROCHE
  Company Number: None

PATIENT
  Age: 62 Year
  Sex: Female

DRUGS (1)
  1. OCRELIZUMAB [Suspect]
     Active Substance: OCRELIZUMAB
     Indication: Multiple sclerosis
     Dosage: AS PER THE TECHNICAL DATA SHEET 300 MG (TWO DOSES 15 DAYS APART) THEN 600 MG EVERY 6 MONTHS
     Route: 042
     Dates: start: 202308, end: 202403

REACTIONS (1)
  - Neoplasm [Fatal]

NARRATIVE: CASE EVENT DATE: 20240715
